FAERS Safety Report 19907866 (Version 1)
Quarter: 2021Q4

REPORT INFORMATION
  Report Type: Spontaneous
  Country: CN (occurrence: CN)
  Receive Date: 20211001
  Receipt Date: 20211001
  Transmission Date: 20220303
  Serious: Yes (Other)
  Sender: FDA-Public Use
  Company Number: CN-BOEHRINGERINGELHEIM-2021-BI-129211

PATIENT
  Age: 75 Year
  Sex: Female
  Weight: 60.4 kg

DRUGS (1)
  1. JARDIANCE [Suspect]
     Active Substance: EMPAGLIFLOZIN
     Indication: Type 2 diabetes mellitus
     Route: 048
     Dates: start: 20210730, end: 20210802

REACTIONS (2)
  - White blood cells urine [Unknown]
  - Dysuria [Unknown]

NARRATIVE: CASE EVENT DATE: 20210802
